FAERS Safety Report 17381612 (Version 1)
Quarter: 2020Q1

REPORT INFORMATION
  Report Type: Spontaneous
  Country: US (occurrence: US)
  Receive Date: 20200206
  Receipt Date: 20200206
  Transmission Date: 20200409
  Serious: No
  Sender: FDA-Public Use
  Company Number: None

PATIENT
  Age: 57 Year
  Sex: Male
  Weight: 121.5 kg

DRUGS (11)
  1. CLONAZEPAM. [Concomitant]
     Active Substance: CLONAZEPAM
  2. TADALAFIL 5 MG TABLET [Suspect]
     Active Substance: TADALAFIL
     Indication: PNEUMONIA
     Dosage: ?          QUANTITY:1 TABLET(S);?
     Route: 048
     Dates: start: 20200127, end: 20200205
  3. NEFAZODONE [Suspect]
     Active Substance: NEFAZODONE
  4. HYDROCHLOROTHIAZIDE. [Concomitant]
     Active Substance: HYDROCHLOROTHIAZIDE
  5. MULTIVITAMIN [Concomitant]
     Active Substance: VITAMINS
  6. CYMBALTA [Concomitant]
     Active Substance: DULOXETINE HYDROCHLORIDE
  7. OMEPRAZOLE. [Concomitant]
     Active Substance: OMEPRAZOLE
  8. ASTELIN [Concomitant]
     Active Substance: AZELASTINE HYDROCHLORIDE
  9. ADVAIR HFA [Concomitant]
     Active Substance: FLUTICASONE PROPIONATE\SALMETEROL XINAFOATE
  10. DILTIAZEM. [Concomitant]
     Active Substance: DILTIAZEM
  11. CITERAZINE [Concomitant]

REACTIONS (3)
  - Tinnitus [None]
  - Dizziness [None]
  - Fatty liver alcoholic [None]

NARRATIVE: CASE EVENT DATE: 20200127
